FAERS Safety Report 7458257-9 (Version None)
Quarter: 2011Q2

REPORT INFORMATION
  Report Type: 
  Country: None (occurrence: None)
  Receive Date: 20110503
  Receipt Date: 20110503
  Transmission Date: 20111010
  Serious: Yes (Hospitalization)
  Sender: FDA-Public Use
  Company Number: None

PATIENT
  Sex: Female
  Weight: 40.8237 kg

DRUGS (1)
  1. TAMSULOSIN HCL [Suspect]
     Indication: NEPHROLITHIASIS
     Dosage: 0.4MG ONCE PO
     Route: 048
     Dates: start: 20110415, end: 20110415

REACTIONS (1)
  - BREAST PAIN [None]
